FAERS Safety Report 25963534 (Version 1)
Quarter: 2025Q4

REPORT INFORMATION
  Report Type: Spontaneous
  Country: US (occurrence: US)
  Receive Date: 20251027
  Receipt Date: 20251027
  Transmission Date: 20260118
  Serious: No
  Sender: VERTEX
  Company Number: US-VERTEX PHARMACEUTICALS-2025-017678

PATIENT
  Sex: Female

DRUGS (2)
  1. JOURNAVX [Suspect]
     Active Substance: SUZETRIGINE
     Indication: Nerve compression
     Dosage: 100 MG, SINGLE (LOADING DOSE)
     Route: 048
     Dates: start: 20251020, end: 20251020
  2. JOURNAVX [Suspect]
     Active Substance: SUZETRIGINE
     Dosage: 50 MG
     Route: 048
     Dates: start: 20251021

REACTIONS (2)
  - Swollen tongue [Not Recovered/Not Resolved]
  - Off label use [Unknown]

NARRATIVE: CASE EVENT DATE: 20251020
